FAERS Safety Report 20967858 (Version 1)
Quarter: 2022Q2

REPORT INFORMATION
  Report Type: Spontaneous
  Country: US (occurrence: US)
  Receive Date: 20220616
  Receipt Date: 20220616
  Transmission Date: 20220720
  Serious: Yes (Other)
  Sender: FDA-Public Use
  Company Number: US-SA-SAC20220615002017

PATIENT
  Age: 82 Year
  Sex: Female

DRUGS (1)
  1. DULCOLAX NOS [Suspect]
     Active Substance: BISACODYL OR DOCUSATE SODIUM
     Indication: Colonoscopy
     Dosage: UNK
     Dates: start: 20220510

REACTIONS (3)
  - Rectal haemorrhage [Unknown]
  - Nausea [Unknown]
  - Vomiting [Unknown]
